FAERS Safety Report 10434599 (Version 2)
Quarter: 2014Q4

REPORT INFORMATION
  Report Type: Spontaneous
  Country: JP (occurrence: JP)
  Receive Date: 20140905
  Receipt Date: 20141120
  Transmission Date: 20150528
  Serious: Yes (Hospitalization)
  Sender: FDA-Public Use
  Company Number: PHHY2014JP111221

PATIENT
  Age: 78 Year
  Sex: Male

DRUGS (1)
  1. ONBREZ [Suspect]
     Active Substance: INDACATEROL
     Indication: DYSPNOEA EXERTIONAL
     Route: 065
     Dates: start: 20121107

REACTIONS (2)
  - Bronchitis [Recovered/Resolved]
  - Cor pulmonale [Recovered/Resolved]

NARRATIVE: CASE EVENT DATE: 20130315
